FAERS Safety Report 7276604-8 (Version None)
Quarter: 2011Q1

REPORT INFORMATION
  Report Type: 
  Country: None (occurrence: None)
  Receive Date: 20110204
  Receipt Date: 20110203
  Transmission Date: 20110831
  Serious: Yes (Life-Threatening)
  Sender: FDA-Public Use
  Company Number: AT-BAYER-2011-010625

PATIENT
  Age: 48 Year
  Sex: Male
  Weight: 83 kg

DRUGS (1)
  1. ULTRAVIST 150 [Suspect]
     Indication: COMPUTERISED TOMOGRAM
     Dosage: DAILY DOSE 120 ML
     Route: 042
     Dates: start: 20110127, end: 20110127

REACTIONS (9)
  - VOMITING [None]
  - BLOOD PRESSURE DECREASED [None]
  - FAECAL INCONTINENCE [None]
  - ABDOMINAL PAIN [None]
  - HYPOAESTHESIA [None]
  - NAUSEA [None]
  - URINARY INCONTINENCE [None]
  - MUSCLE SPASMS [None]
  - SOMNOLENCE [None]
